FAERS Safety Report 5921641-6 (Version None)
Quarter: 2008Q4

REPORT INFORMATION
  Report Type: 
  Country: None (occurrence: None)
  Receive Date: 20081016
  Receipt Date: 20081016
  Transmission Date: 20090506
  Serious: No
  Sender: FDA-Public Use
  Company Number: None

PATIENT
  Age: 65 Year
  Sex: Male

DRUGS (1)
  1. LITHIUM [Suspect]

REACTIONS (10)
  - DEPRESSION [None]
  - DIARRHOEA [None]
  - ELECTROCARDIOGRAM QT PROLONGED [None]
  - ELECTROCARDIOGRAM T WAVE AMPLITUDE DECREASED [None]
  - HYPOPHAGIA [None]
  - NAUSEA [None]
  - RENAL FAILURE CHRONIC [None]
  - THERAPEUTIC AGENT TOXICITY [None]
  - TREMOR [None]
  - WEIGHT DECREASED [None]
